FAERS Safety Report 13354827 (Version 1)
Quarter: 2017Q1

REPORT INFORMATION
  Report Type: Spontaneous
  Country: FR (occurrence: FR)
  Receive Date: 20170321
  Receipt Date: 20170321
  Transmission Date: 20170429
  Serious: Yes (Hospitalization)
  Sender: FDA-Public Use
  Company Number: FR-009507513-1703FRA006829

PATIENT
  Age: 75 Year
  Sex: Male

DRUGS (4)
  1. EZETROL [Suspect]
     Active Substance: EZETIMIBE
     Dosage: 10 MG/DAY
     Route: 048
     Dates: start: 20170215, end: 20170222
  2. TAHOR [Suspect]
     Active Substance: ATORVASTATIN CALCIUM
     Dosage: 80 MG/DAY
     Route: 048
     Dates: start: 20170215, end: 20170222
  3. CEFAZOLIN [Suspect]
     Active Substance: CEFAZOLIN
     Dosage: 1 G X 3 /DAY
     Route: 040
     Dates: start: 20170222, end: 20170222
  4. TAHOR [Suspect]
     Active Substance: ATORVASTATIN CALCIUM
     Dosage: 40 MG/DAY
     Route: 048
     Dates: start: 20170223, end: 20170227

REACTIONS (2)
  - Eosinophilia [Not Recovered/Not Resolved]
  - Rash [Recovering/Resolving]

NARRATIVE: CASE EVENT DATE: 20170224
